FAERS Safety Report 6577241-0 (Version None)
Quarter: 2010Q1

REPORT INFORMATION
  Report Type: 
  Country: None (occurrence: None)
  Receive Date: 20100210
  Receipt Date: 20100204
  Transmission Date: 20100710
  Serious: Yes (Hospitalization)
  Sender: FDA-Public Use
  Company Number: US-SANOFI-AVENTIS-2010SA001099

PATIENT
  Age: 78 Year
  Sex: Male
  Weight: 60.8 kg

DRUGS (16)
  1. OXALIPLATIN [Suspect]
     Indication: COLORECTAL CANCER
     Dosage: 137 MG, DAY 1 EVERY 2 WEEKS
     Route: 041
     Dates: end: 20080317
  2. OXALIPLATIN [Suspect]
     Dosage: 137 MG, DAY 1 EVERY 2 WEEKS
     Route: 041
     Dates: start: 20071112, end: 20071112
  3. BEVACIZUMAB [Suspect]
     Indication: COLORECTAL CANCER
     Dosage: 268 MG, EVERY 2 WEEKS
     Route: 042
     Dates: start: 20080317, end: 20080317
  4. BEVACIZUMAB [Suspect]
     Dosage: 268 MG, EVERY 2 WEEKS
     Route: 042
     Dates: start: 20071112, end: 20071112
  5. FLUOROURACIL [Suspect]
     Indication: COLORECTAL CANCER
     Dosage: 648 MG, IVP DAY 1 EVERY 2 WEEKS
     Route: 040
     Dates: start: 20080317, end: 20080317
  6. FLUOROURACIL [Suspect]
     Dosage: 648 MG, IVP DAY 1 EVERY 2 WEEKS
     Route: 040
     Dates: start: 20071112, end: 20071112
  7. FLUOROURACIL [Suspect]
     Dosage: 2400 MG/M2 (3888 MG) ON DAYS 1-5 EVERY 2 WEEKS
     Route: 041
     Dates: start: 20080317, end: 20080319
  8. FLUOROURACIL [Suspect]
     Dosage: 2400 MG/M2 (3888 MG) ON DAYS 1-5 EVERY 2 WEEKS
     Route: 041
     Dates: start: 20081112
  9. LEUCOVORIN CALCIUM [Suspect]
     Indication: COLORECTAL CANCER
     Dosage: 648 MG, EVERY 2 WEEKS
     Route: 042
     Dates: start: 20080317, end: 20080317
  10. LEUCOVORIN CALCIUM [Suspect]
     Dosage: 648 MG, EVERY 2 WEEKS
     Route: 042
     Dates: start: 20071112, end: 20071112
  11. ZOFRAN [Concomitant]
     Dates: start: 20080322, end: 20080323
  12. PRILOSEC [Concomitant]
     Dates: start: 20080322
  13. ALTERNAGEL [Concomitant]
     Dates: start: 20080317
  14. LASIX [Concomitant]
     Dates: start: 20080317
  15. PERI-COLACE [Concomitant]
     Dates: start: 20080317
  16. SENNA [Concomitant]

REACTIONS (5)
  - ANAEMIA [None]
  - DEEP VEIN THROMBOSIS [None]
  - GASTROINTESTINAL HAEMORRHAGE [None]
  - OESOPHAGITIS [None]
  - SHOCK HAEMORRHAGIC [None]
